FAERS Safety Report 8986588 (Version 1)
Quarter: 2012Q4

REPORT INFORMATION
  Report Type: 
  Country: US (occurrence: US)
  Receive Date: 20121227
  Receipt Date: 20121227
  Transmission Date: 20130627
  Serious: Yes (Other)
  Sender: FDA-Public Use
  Company Number: US-TEVA-377617USA

PATIENT
  Sex: Male

DRUGS (1)
  1. COPAXONE [Suspect]
     Dates: end: 20121204

REACTIONS (2)
  - Renal cancer [Unknown]
  - Pain [Unknown]
